FAERS Safety Report 12889437 (Version 4)
Quarter: 2016Q4

REPORT INFORMATION
  Report Type: Spontaneous
  Country: JP (occurrence: JP)
  Receive Date: 20161027
  Receipt Date: 20161123
  Transmission Date: 20170207
  Serious: Yes (Disabling, Other)
  Sender: FDA-Public Use
  Company Number: PHJP2016JP030445

PATIENT
  Age: 72 Year
  Sex: Male
  Weight: 47 kg

DRUGS (4)
  1. PROPETO [Concomitant]
     Indication: PRODUCT USED FOR UNKNOWN INDICATION
     Dosage: UNK
     Route: 061
     Dates: start: 20160929, end: 20161012
  2. PLETAAL [Concomitant]
     Active Substance: CILOSTAZOL
     Indication: PRODUCT USED FOR UNKNOWN INDICATION
     Dosage: 50 MG, BID
     Route: 048
     Dates: start: 20150805
  3. URSO [Concomitant]
     Active Substance: URSODIOL
     Indication: HEPATIC FUNCTION ABNORMAL
     Dosage: 200 MG, TID
     Route: 048
  4. EXELON PATCH [Suspect]
     Active Substance: RIVASTIGMINE
     Indication: MIXED DEMENTIA
     Dosage: 4.6 MG, QD PATCH 5 CM2 (9 MG RIVASTIGMINE BASE)
     Route: 062
     Dates: start: 20160929, end: 20161012

REACTIONS (4)
  - Athetosis [Recovered/Resolved]
  - Product use issue [Unknown]
  - Communication disorder [Recovering/Resolving]
  - Cerebral infarction [Recovering/Resolving]

NARRATIVE: CASE EVENT DATE: 20160929
